FAERS Safety Report 21406340 (Version 4)
Quarter: 2022Q4

REPORT INFORMATION
  Report Type: Spontaneous
  Country: US (occurrence: US)
  Receive Date: 20221004
  Receipt Date: 20221019
  Transmission Date: 20230113
  Serious: No
  Sender: FDA-Public Use
  Company Number: US-PFIZER INC-PV202200075236

PATIENT
  Age: 52 Year
  Sex: Male

DRUGS (1)
  1. PAXLOVID [Suspect]
     Active Substance: NIRMATRELVIR\RITONAVIR
     Indication: COVID-19 treatment
     Dosage: UNK
     Dates: start: 20220930

REACTIONS (21)
  - Arthralgia [Unknown]
  - Back pain [Unknown]
  - Chills [Unknown]
  - Chest discomfort [Unknown]
  - Cough [Not Recovered/Not Resolved]
  - COVID-19 [Not Recovered/Not Resolved]
  - Disease recurrence [Not Recovered/Not Resolved]
  - Diarrhoea [Unknown]
  - Disturbance in attention [Unknown]
  - Dysstasia [Unknown]
  - Fatigue [Unknown]
  - Feeling abnormal [Unknown]
  - Flatulence [Unknown]
  - Headache [Not Recovered/Not Resolved]
  - Hyperhidrosis [Unknown]
  - Malaise [Unknown]
  - Pain [Unknown]
  - Productive cough [Unknown]
  - Retching [Unknown]
  - Sputum increased [Unknown]
  - Insomnia [Unknown]

NARRATIVE: CASE EVENT DATE: 20220930
